FAERS Safety Report 23422480 (Version 1)
Quarter: 2024Q1

REPORT INFORMATION
  Report Type: Spontaneous
  Country: US (occurrence: US)
  Receive Date: 20240119
  Receipt Date: 20240119
  Transmission Date: 20240410
  Serious: No
  Sender: FDA-Public Use
  Company Number: US-VIIV HEALTHCARE LIMITED-US2024004692

PATIENT
  Sex: Male
  Weight: 118.82 kg

DRUGS (2)
  1. TRIUMEQ [Suspect]
     Active Substance: ABACAVIR SULFATE\DOLUTEGRAVIR SODIUM\LAMIVUDINE
     Indication: HIV infection
     Dosage: 1 DF, QD (600-50-300MG)
     Route: 048
     Dates: start: 20180227, end: 20230424
  2. COMPLERA [Concomitant]
     Active Substance: EMTRICITABINE\RILPIVIRINE HYDROCHLORIDE\TENOFOVIR DISOPROXIL FUMARATE
     Indication: Product used for unknown indication
     Dosage: 1 DF, QD (WITH MEAL, 200-25-300MG)
     Route: 048
     Dates: end: 20180227

REACTIONS (2)
  - Vitamin D deficiency [Not Recovered/Not Resolved]
  - Creatinine urine [Unknown]
